FAERS Safety Report 4427280-0 (Version None)
Quarter: 2004Q3

REPORT INFORMATION
  Report Type: 
  Country: None (occurrence: None)
  Receive Date: 20040817
  Receipt Date: 20040809
  Transmission Date: 20050211
  Serious: Yes (Other)
  Sender: FDA-Public Use
  Company Number: 200412500EU

PATIENT
  Age: 69 Year
  Sex: Male

DRUGS (7)
  1. DAONIL [Suspect]
     Indication: DIABETES MELLITUS
     Route: 048
     Dates: start: 20040607, end: 20040608
  2. TRIATEC [Concomitant]
  3. METFORMIN HCL [Concomitant]
  4. ZOPIKLON NM PHARMA [Concomitant]
  5. ZOCORD [Concomitant]
  6. TROMBYL [Concomitant]
  7. LOGIMAX [Concomitant]

REACTIONS (2)
  - ANGIONEUROTIC OEDEMA [None]
  - URTICARIA [None]
